FAERS Safety Report 6376079-7 (Version None)
Quarter: 2009Q3

REPORT INFORMATION
  Report Type: 
  Country: None (occurrence: None)
  Receive Date: 20090918
  Receipt Date: 20090908
  Transmission Date: 20100115
  Serious: Yes (Other)
  Sender: FDA-Public Use
  Company Number: A20090704-002

PATIENT
  Age: 77 Year
  Sex: Female

DRUGS (5)
  1. PITAVASTATIN CALCIUM [Suspect]
     Indication: HYPERCHOLESTEROLAEMIA
     Dosage: 2MG PO
     Route: 048
     Dates: start: 20090704, end: 20090730
  2. AMLODIPINE BESYLATE [Concomitant]
  3. TELMISARTAN [Concomitant]
  4. SODIUM RISEDRONATE HYDRATE [Concomitant]
  5. LANSOPRAZOLE [Concomitant]

REACTIONS (1)
  - RHABDOMYOLYSIS [None]
